FAERS Safety Report 15465872 (Version 1)
Quarter: 2018Q4

REPORT INFORMATION
  Report Type: Spontaneous
  Country: US (occurrence: US)
  Receive Date: 20181004
  Receipt Date: 20181004
  Transmission Date: 20190204
  Serious: No
  Sender: FDA-Public Use
  Company Number: US-FOUNDATIONCONSUMERHC-2018-US-012394

PATIENT
  Sex: Female

DRUGS (1)
  1. PLAN B ONE-STEP [Suspect]
     Active Substance: LEVONORGESTREL
     Dates: start: 20180718, end: 20180718

REACTIONS (3)
  - Vaginal haemorrhage [Unknown]
  - Vaginal haemorrhage [Unknown]
  - Nausea [Unknown]

NARRATIVE: CASE EVENT DATE: 20180722
